FAERS Safety Report 12606454 (Version 2)
Quarter: 2017Q3

REPORT INFORMATION
  Report Type: Spontaneous
  Country: FR (occurrence: FR)
  Receive Date: 20160729
  Receipt Date: 20170807
  Transmission Date: 20171127
  Serious: Yes (Hospitalization)
  Sender: FDA-Public Use
  Company Number: FR-GLAXOSMITHKLINE-FR2016GSK108887

PATIENT
  Age: 56 Year
  Sex: Male

DRUGS (18)
  1. NEBIVOLOL. [Concomitant]
     Active Substance: NEBIVOLOL
     Dosage: 5 MG, 1D
  2. ARANESP [Concomitant]
     Active Substance: DARBEPOETIN ALFA
     Dosage: UNK
  3. COLCHICINE. [Suspect]
     Active Substance: COLCHICINE
     Indication: GOUT
     Dosage: UNK
     Route: 048
     Dates: start: 20160628, end: 20160630
  4. ZYLORIC [Concomitant]
     Active Substance: ALLOPURINOL
     Dosage: 300 MG, 1D
  5. WELLVONE [Suspect]
     Active Substance: ATOVAQUONE
     Indication: ANTIFUNGAL PROPHYLAXIS
     Dosage: 1 DF, BID
     Route: 048
     Dates: start: 20160623, end: 20160704
  6. MYFORTIC [Concomitant]
     Active Substance: MYCOPHENOLATE SODIUM
     Dosage: 180 MG, BID
  7. ROCEPHINE [Suspect]
     Active Substance: CEFTRIAXONE SODIUM
     Indication: PNEUMONIA
     Dosage: UNK
     Route: 042
     Dates: start: 20160623, end: 20160701
  8. FLAGYL [Suspect]
     Active Substance: METRONIDAZOLE\METRONIDAZOLE HYDROCHLORIDE
     Indication: PNEUMONIA
     Dosage: 500 MG, TID
     Route: 048
     Dates: start: 20160623, end: 20160630
  9. FLAGYL [Suspect]
     Active Substance: METRONIDAZOLE\METRONIDAZOLE HYDROCHLORIDE
     Indication: SEPTIC SHOCK
  10. NEORAL [Concomitant]
     Active Substance: CYCLOSPORINE
     Dosage: 70 MG, BID
  11. TARDYFERON [Concomitant]
     Active Substance: FERROUS SULFATE
     Dosage: 1 UNK, 1D
  12. ROVAMYCINE [Suspect]
     Active Substance: SPIRAMYCIN
     Indication: PNEUMONIA
     Dosage: 3 MILLION IU, TID
     Route: 042
     Dates: start: 20160623, end: 20160630
  13. ZYVOXID [Suspect]
     Active Substance: LINEZOLID
     Indication: STAPHYLOCOCCAL INFECTION
     Dosage: 600 MG, BID
     Route: 048
     Dates: start: 20160626, end: 20160630
  14. ICAZ [Concomitant]
     Active Substance: ISRADIPINE
     Dosage: 5 MG, TID
  15. LASILIX [Concomitant]
     Active Substance: FUROSEMIDE
     Dosage: UNK
  16. UVEDOSE [Concomitant]
     Active Substance: CHOLECALCIFEROL
     Dosage: 100000 UNK, Z
  17. PENTACARINAT [Concomitant]
     Active Substance: PENTAMIDINE ISETHIONATE
     Dosage: 300 MG, Z
     Route: 055
  18. ROCEPHINE [Suspect]
     Active Substance: CEFTRIAXONE SODIUM
     Indication: SEPTIC SHOCK

REACTIONS (2)
  - Rash [Recovered/Resolved]
  - Mouth ulceration [Recovered/Resolved]

NARRATIVE: CASE EVENT DATE: 20160629
